FAERS Safety Report 6227923-5 (Version None)
Quarter: 2009Q2

REPORT INFORMATION
  Report Type: 
  Country: None (occurrence: None)
  Receive Date: 20090612
  Receipt Date: 20090608
  Transmission Date: 20091009
  Serious: Yes (Other)
  Sender: FDA-Public Use
  Company Number: ES-JNJFOC-20090602830

PATIENT
  Age: 61 Year
  Sex: Female

DRUGS (3)
  1. REMICADE [Suspect]
     Indication: PSORIATIC ARTHROPATHY
     Route: 042
  2. METHYLPREDNISOLONE [Concomitant]
     Indication: PREMEDICATION
  3. DEXCHLORPHENIRAMINE MALEATE [Concomitant]
     Indication: PREMEDICATION
     Route: 050

REACTIONS (5)
  - DYSPNOEA [None]
  - FLUSHING [None]
  - HYPERTENSIVE CRISIS [None]
  - INFUSION RELATED REACTION [None]
  - TACHYCARDIA [None]
